FAERS Safety Report 8076944-9 (Version None)
Quarter: 2012Q1

REPORT INFORMATION
  Report Type: 
  Country: None (occurrence: None)
  Receive Date: 20120127
  Receipt Date: 20120116
  Transmission Date: 20120608
  Serious: Yes (Other)
  Sender: FDA-Public Use
  Company Number: PHEH2012US001446

PATIENT
  Sex: Female

DRUGS (3)
  1. FERGON [Concomitant]
     Indication: OSTEOPOROSIS
  2. SUMYCIN [Suspect]
  3. MIACALCIN [Suspect]
     Indication: SINUS DISORDER

REACTIONS (2)
  - CONJUNCTIVAL HYPERAEMIA [None]
  - THROAT TIGHTNESS [None]
